FAERS Safety Report 18262107 (Version 1)
Quarter: 2020Q3

REPORT INFORMATION
  Report Type: Spontaneous
  Country: GB (occurrence: GB)
  Receive Date: 20200914
  Receipt Date: 20200914
  Transmission Date: 20201103
  Serious: Yes (Hospitalization)
  Sender: FDA-Public Use
  Company Number: GB-ASTRAZENECA-2020SF15962

PATIENT
  Age: 79 Year
  Sex: Female

DRUGS (11)
  1. DOXYCYCLINE. [Concomitant]
     Active Substance: DOXYCYCLINE
     Dosage: TWO TO BE TAKEN ON THE FIRST DAY THEN ONE TO BE TAKEN EACH DAY, 16 CAPSULES
     Dates: start: 20200817
  2. COCODAMOL [Concomitant]
     Active Substance: ACETAMINOPHEN\CODEINE PHOSPHATE
     Dosage: 8MG/500MG, 8 DF
  3. OMEPRAZOLE. [Suspect]
     Active Substance: OMEPRAZOLE
     Dosage: 20 MG, ONE OR TWO TO BE TAKEN EACH DAY
     Route: 048
  4. RELVAR ELLIPTA [Concomitant]
     Active Substance: FLUTICASONE FUROATE\VILANTEROL TRIFENATATE
     Dosage: 1 DF, PUFF, 184MICROGRAMS/DOSE / 22MICROGRAMS/DOSE
  5. PROCHLORPERAZINE. [Suspect]
     Active Substance: PROCHLORPERAZINE
     Route: 065
     Dates: start: 20200720
  6. APIXABAN [Concomitant]
     Active Substance: APIXABAN
     Dosage: 10.0MG UNKNOWN
  7. AZITHROMYCIN ANHYDROUS. [Concomitant]
     Active Substance: AZITHROMYCIN ANHYDROUS
     Dosage: 750.0MG UNKNOWN
  8. MOMETASONE [Concomitant]
     Active Substance: MOMETASONE
     Dosage: 100.0UG/INHAL UNKNOWN
  9. SALBUTAMOL [Concomitant]
     Active Substance: ALBUTEROL
     Dosage: 1 DF, PUFF, 200MICROGRAMS/DOSE
  10. TILDIEM LA [Concomitant]
     Active Substance: DILTIAZEM HYDROCHLORIDE
     Dosage: 1.0DF UNKNOWN
  11. ACIDEX [Concomitant]
     Active Substance: CALCIUM CARBONATE\SODIUM ALGINATE\SODIUM BICARBONATE

REACTIONS (2)
  - Dyskinesia [Unknown]
  - Hyponatraemia [Unknown]
